FAERS Safety Report 10502790 (Version 1)
Quarter: 2014Q4

REPORT INFORMATION
  Report Type: Spontaneous
  Country: PT (occurrence: None)
  Receive Date: 20141003
  Receipt Date: 20141003
  Transmission Date: 20150528
  Serious: Yes (Hospitalization)
  Sender: FDA-Public Use
  Company Number: 2554427

PATIENT
  Age: 66 Year
  Sex: Male
  Weight: 90 kg

DRUGS (10)
  1. INSULIN HUMAN [Concomitant]
     Active Substance: INSULIN HUMAN
  2. ENOXAPARIN [Concomitant]
     Active Substance: ENOXAPARIN
  3. PANTOPRAZOLE [Concomitant]
     Active Substance: PANTOPRAZOLE SODIUM
  4. CALCIUM POLYSTYRENE SULFONATE [Concomitant]
     Active Substance: CALCIUM POLYSTYRENE SULFONATE
  5. PARACETAMOL [Concomitant]
     Active Substance: ACETAMINOPHEN
  6. MEROPENEM. [Suspect]
     Active Substance: MEROPENEM
     Indication: ERYSIPELAS
     Route: 042
     Dates: start: 20140803, end: 20140805
  7. FUROSEMIDE. [Concomitant]
     Active Substance: FUROSEMIDE
  8. CAPTOPRIL. [Concomitant]
     Active Substance: CAPTOPRIL
  9. SALINE [Concomitant]
     Active Substance: SODIUM CHLORIDE
  10. CIPROFLOXACIN. [Concomitant]
     Active Substance: CIPROFLOXACIN

REACTIONS (1)
  - Hepatitis toxic [None]

NARRATIVE: CASE EVENT DATE: 20140803
